FAERS Safety Report 7472381-6 (Version None)
Quarter: 2011Q2

REPORT INFORMATION
  Report Type: 
  Country: None (occurrence: None)
  Receive Date: 20110511
  Receipt Date: 20110504
  Transmission Date: 20111010
  Serious: Yes (Other)
  Sender: FDA-Public Use
  Company Number: PHHY2011US28935

PATIENT
  Sex: Female
  Weight: 77.2 kg

DRUGS (5)
  1. NEURONTIN [Concomitant]
     Indication: NEUROPATHY PERIPHERAL
     Dosage: 2 IN THE MORNING, 1 MID DAY AND 2 AT NIGHT
     Dates: start: 20090101
  2. IBUPROFEN [Concomitant]
     Indication: PAIN IN EXTREMITY
     Dosage: 1 TO 2 TIMES DAILY
     Dates: start: 20100101
  3. GILENYA [Suspect]
     Indication: RELAPSING-REMITTING MULTIPLE SCLEROSIS
     Dosage: 0.5 MG, QD
     Route: 048
     Dates: start: 20110405, end: 20110504
  4. VITAMIN D [Concomitant]
     Dosage: 1000 IU, UNK
  5. NEURONTIN [Concomitant]
     Indication: PARAESTHESIA

REACTIONS (7)
  - MUSCULAR WEAKNESS [None]
  - FEELING HOT [None]
  - FALL [None]
  - ASTHENIA [None]
  - SENSORY LOSS [None]
  - NAUSEA [None]
  - BURNING SENSATION [None]
